FAERS Safety Report 7307262-1 (Version None)
Quarter: 2011Q1

REPORT INFORMATION
  Report Type: 
  Country: None (occurrence: None)
  Receive Date: 20110223
  Receipt Date: 20110215
  Transmission Date: 20110831
  Serious: No
  Sender: FDA-Public Use
  Company Number: US-PFIZER INC-2010148720

PATIENT
  Sex: Male
  Weight: 92 kg

DRUGS (4)
  1. PRISTIQ [Concomitant]
     Indication: DEPRESSION
     Dosage: 100 MG, 1X/DAY
  2. PRISTIQ [Concomitant]
     Indication: ANXIETY
  3. LYRICA [Suspect]
     Indication: DIABETIC NEUROPATHY
     Dosage: 150 MG, 1X/DAY
     Route: 048
     Dates: start: 20101112
  4. LYRICA [Suspect]
     Indication: SPINAL DISORDER

REACTIONS (2)
  - DRUG INEFFECTIVE [None]
  - PAIN [None]
